FAERS Safety Report 4334187-6 (Version None)
Quarter: 2004Q2

REPORT INFORMATION
  Report Type: 
  Country: None (occurrence: None)
  Receive Date: 20040402
  Receipt Date: 20040326
  Transmission Date: 20050107
  Serious: Yes (Death, Hospitalization)
  Sender: FDA-Public Use
  Company Number: 2004SE01714

PATIENT
  Age: 77 Year
  Sex: Female
  Weight: 52 kg

DRUGS (9)
  1. BLOPRESS [Suspect]
     Indication: PROPHYLAXIS
     Dosage: 4 MG QD PO
     Route: 048
     Dates: start: 20040212, end: 20040215
  2. DOPAMINE HYDROCHLORIDE [Concomitant]
  3. DOBUTAMINE HCL [Concomitant]
  4. NICORANDIL [Concomitant]
  5. BROTIZOLAM [Concomitant]
  6. FAMOTIDINE [Concomitant]
  7. GLYCERYL TRINITRATE [Concomitant]
  8. OLPRINONE HYDROCHLORIDE [Concomitant]
  9. FUROSEMIDE [Concomitant]

REACTIONS (4)
  - CARDIAC FAILURE [None]
  - DRUG ERUPTION [None]
  - DRUG INTERACTION [None]
  - RENAL FAILURE ACUTE [None]
